FAERS Safety Report 19065802 (Version 2)
Quarter: 2021Q2

REPORT INFORMATION
  Report Type: Spontaneous
  Country: US (occurrence: US)
  Receive Date: 20210327
  Receipt Date: 20210409
  Transmission Date: 20210717
  Serious: Yes (Death, Hospitalization, Other)
  Sender: FDA-Public Use
  Company Number: US-UNITED THERAPEUTICS-UNT-2021-005439

PATIENT
  Age: 54 Year
  Sex: Male

DRUGS (3)
  1. REMODULIN [Suspect]
     Active Substance: TREPROSTINIL
     Indication: PULMONARY ARTERIAL HYPERTENSION
     Dosage: UNK, CONTINUING
     Route: 041
     Dates: start: 201705
  2. REMODULIN [Suspect]
     Active Substance: TREPROSTINIL
     Dosage: 0.0565 ?G/KG, CONTINUING
     Route: 041
     Dates: end: 20210326
  3. REMODULIN [Suspect]
     Active Substance: TREPROSTINIL
     Dosage: UNK, CONTINUING
     Route: 041
     Dates: start: 20180526

REACTIONS (5)
  - Oxygen saturation decreased [Unknown]
  - Acute kidney injury [Unknown]
  - Cellulitis [Unknown]
  - Pulmonary hypertension [Fatal]
  - Right ventricular failure [Fatal]

NARRATIVE: CASE EVENT DATE: 20210316
